FAERS Safety Report 9973654 (Version 1)
Quarter: 2014Q1

REPORT INFORMATION
  Report Type: Spontaneous
  Country: IT (occurrence: IT)
  Receive Date: 20140306
  Receipt Date: 20140306
  Transmission Date: 20141002
  Serious: Yes (Other)
  Sender: FDA-Public Use
  Company Number: PHHY2014IT024249

PATIENT
  Age: 54 Year
  Sex: Female

DRUGS (2)
  1. OXALIPLATIN [Suspect]
     Indication: COLON CANCER STAGE III
     Dosage: 130 MG/M2, ON DAY 01
  2. CAPECITABINE [Suspect]
     Indication: COLON CANCER STAGE III
     Dosage: 2000 MG/M2, PER DAY ON DAY 0 TO 14

REACTIONS (6)
  - Eyelid ptosis [Recovered/Resolved]
  - Diarrhoea [Unknown]
  - Wheezing [Recovered/Resolved]
  - Constipation [Recovered/Resolved]
  - Paraesthesia [Recovered/Resolved]
  - Dyspnoea [Recovered/Resolved]
